FAERS Safety Report 7869499-2 (Version None)
Quarter: 2011Q4

REPORT INFORMATION
  Report Type: 
  Country: None (occurrence: None)
  Receive Date: 20111028
  Receipt Date: 20111028
  Transmission Date: 20120403
  Serious: No
  Sender: FDA-Public Use
  Company Number: None

PATIENT
  Age: 68 Year
  Sex: Male

DRUGS (8)
  1. ACYCLOVIR [Concomitant]
  2. VICODIN [Concomitant]
  3. REVLIMID [Suspect]
     Indication: MULTIPLE MYELOMA
     Dosage: REVLIMID 10MG DAILY ORAL
     Route: 048
     Dates: start: 20110908, end: 20111020
  4. DECADRON [Concomitant]
  5. ZOLPIDEM [Concomitant]
  6. SIMVASTATIN [Concomitant]
  7. IBUPROFEN [Concomitant]
  8. VELCADE [Concomitant]

REACTIONS (1)
  - RASH PRURITIC [None]
